FAERS Safety Report 11126889 (Version 2)
Quarter: 2015Q2

REPORT INFORMATION
  Report Type: Spontaneous
  Country: US (occurrence: US)
  Receive Date: 20150520
  Receipt Date: 20150622
  Transmission Date: 20150821
  Serious: Yes (Other)
  Sender: FDA-Public Use
  Company Number: US-ENDO PHARMACEUTICALS INC.-2015-000933

PATIENT
  Age: 68 Year
  Sex: Male
  Weight: 68.1 kg

DRUGS (2)
  1. XIAFLEX [Suspect]
     Active Substance: COLLAGENASE CLOSTRIDIUM HISTOLYTICUM
     Indication: DUPUYTREN^S CONTRACTURE
     Route: 065
     Dates: start: 20150504, end: 20150504
  2. NEXIUM [Concomitant]
     Active Substance: ESOMEPRAZOLE MAGNESIUM
     Indication: GASTROINTESTINAL DISORDER
     Route: 065

REACTIONS (10)
  - Neck pain [Recovering/Resolving]
  - Wrong technique in drug usage process [Recovered/Resolved]
  - Laceration [Not Recovered/Not Resolved]
  - Injection site pain [Recovering/Resolving]
  - Injection site haemorrhage [Not Recovered/Not Resolved]
  - Peripheral swelling [Recovering/Resolving]
  - Injection site swelling [Recovering/Resolving]
  - Axillary pain [Recovering/Resolving]
  - Pain [Recovering/Resolving]
  - Injection site discolouration [Not Recovered/Not Resolved]

NARRATIVE: CASE EVENT DATE: 201505
